FAERS Safety Report 9005889 (Version 2)
Quarter: 2013Q2

REPORT INFORMATION
  Report Type: Spontaneous
  Country: CA (occurrence: CA)
  Receive Date: 20130109
  Receipt Date: 20130424
  Transmission Date: 20140414
  Serious: Yes (Other)
  Sender: FDA-Public Use
  Company Number: CA-AMGEN-CANSP2013001306

PATIENT
  Age: 58 Year
  Sex: Female

DRUGS (10)
  1. ENBREL [Suspect]
     Indication: RHEUMATOID ARTHRITIS
     Dosage: 50 MG, UNK
     Dates: start: 20110613
  2. ENBREL [Suspect]
  3. LORAZEPAM [Concomitant]
     Dosage: 3 MG, WHEN NEEDED
  4. TRAZODONE [Concomitant]
     Dosage: 50 MG, AT BEDTIME
  5. RISEDRONATE [Concomitant]
     Dosage: 35 MG, QWK
  6. ADVIL                              /00044201/ [Concomitant]
     Dosage: UNK, WHEN NEEDED
  7. TYLENOL                            /00020001/ [Concomitant]
     Dosage: UNK
  8. PREMARIN [Concomitant]
     Dosage: UNK
  9. CORTISONE [Concomitant]
     Dosage: UNK
     Dates: start: 201206
  10. HORMONES [Concomitant]
     Dosage: UNK

REACTIONS (16)
  - Nerve injury [Not Recovered/Not Resolved]
  - Multiple sclerosis [Not Recovered/Not Resolved]
  - Coeliac disease [Not Recovered/Not Resolved]
  - Carpal tunnel syndrome [Not Recovered/Not Resolved]
  - Blood test abnormal [Unknown]
  - Hot flush [Unknown]
  - Pain [Unknown]
  - Burning sensation [Unknown]
  - Micturition urgency [Unknown]
  - Fatigue [Unknown]
  - Vision blurred [Unknown]
  - Eye pain [Unknown]
  - Arthritis [Unknown]
  - Paraesthesia [Unknown]
  - Psoriasis [Not Recovered/Not Resolved]
  - Nasopharyngitis [Recovered/Resolved]
